FAERS Safety Report 5787492-0 (Version None)
Quarter: 2008Q2

REPORT INFORMATION
  Report Type: 
  Country: None (occurrence: None)
  Receive Date: 20080623
  Receipt Date: 20080623
  Transmission Date: 20081010
  Serious: Yes (Other)
  Sender: FDA-Public Use
  Company Number: None

PATIENT
  Age: 43 Year
  Sex: Female
  Weight: 141.5223 kg

DRUGS (4)
  1. EFFEXOR XR [Suspect]
     Indication: ANXIETY
     Dosage: ONE CAPSULE DAILY
     Dates: start: 20070101, end: 20080101
  2. EFFEXOR XR [Suspect]
     Indication: DEPRESSION
     Dosage: ONE CAPSULE DAILY
     Dates: start: 20070101, end: 20080101
  3. EFFEXOR XR [Suspect]
     Indication: ANXIETY
     Dosage: ONE CAPSULE DAILY
     Dates: start: 20070101, end: 20080101
  4. EFFEXOR XR [Suspect]
     Indication: DEPRESSION
     Dosage: ONE CAPSULE DAILY
     Dates: start: 20070101, end: 20080101

REACTIONS (10)
  - ANGER [None]
  - ANOREXIA [None]
  - CRYING [None]
  - DRUG WITHDRAWAL SYNDROME [None]
  - FEELING ABNORMAL [None]
  - FEELING OF DESPAIR [None]
  - HALLUCINATION, VISUAL [None]
  - PARANOIA [None]
  - SUICIDAL IDEATION [None]
  - TREMOR [None]
